FAERS Safety Report 14166816 (Version 1)
Quarter: 2017Q4

REPORT INFORMATION
  Report Type: Spontaneous
  Country: US (occurrence: US)
  Receive Date: 20171106
  Receipt Date: 20171106
  Transmission Date: 20180321
  Serious: Yes (Congenital Anomaly)
  Sender: FDA-Public Use
  Company Number: None

PATIENT
  Age: 31 Year
  Sex: Female
  Weight: 75.6 kg

DRUGS (1)
  1. PROMETHAZINE [Suspect]
     Active Substance: PROMETHAZINE\PROMETHAZINE HYDROCHLORIDE
     Indication: VOMITING
     Dosage: ?          QUANTITY:1 CAPSULE(S);?
     Route: 054
     Dates: start: 20161206, end: 20170515

REACTIONS (3)
  - Maternal drugs affecting foetus [None]
  - Cardiac septal defect [None]
  - Exposure during pregnancy [None]

NARRATIVE: CASE EVENT DATE: 20170728
